FAERS Safety Report 6840338-1 (Version None)
Quarter: 2010Q2

REPORT INFORMATION
  Report Type: 
  Country: None (occurrence: None)
  Receive Date: 20100629
  Receipt Date: 20100521
  Transmission Date: 20101027
  Serious: Yes (Other)
  Sender: FDA-Public Use
  Company Number: US-WYE-H15278110

PATIENT
  Age: 48 Year
  Sex: Male
  Weight: 90.8 kg

DRUGS (2)
  1. PRISTIQ [Suspect]
     Indication: DEPRESSION
     Dosage: 50 MG 1X PER 1 DAY, ORAL
     Route: 048
     Dates: start: 20090201
  2. PRISTIQ [Suspect]

REACTIONS (6)
  - BLOOD PRESSURE INCREASED [None]
  - DIZZINESS [None]
  - ERYTHEMA [None]
  - HYPERHIDROSIS [None]
  - INSOMNIA [None]
  - NAUSEA [None]
